FAERS Safety Report 6438618-7 (Version None)
Quarter: 2009Q4

REPORT INFORMATION
  Report Type: 
  Country: None (occurrence: None)
  Receive Date: 20091110
  Receipt Date: 20091029
  Transmission Date: 20100525
  Serious: Yes (Hospitalization, Other)
  Sender: FDA-Public Use
  Company Number: 2009-04221

PATIENT
  Age: 82 Year
  Sex: Female
  Weight: 46.8 kg

DRUGS (7)
  1. VELCADE [Suspect]
     Indication: MULTIPLE MYELOMA
     Dosage: 1.3 MG/M2, INTRAVENOUS
     Route: 042
     Dates: start: 20090713, end: 20090903
  2. DEXAMETHASONE TAB [Suspect]
     Indication: MULTIPLE MYELOMA
     Dosage: 20 MG, ORAL
     Route: 048
     Dates: start: 20090713, end: 20090925
  3. REVLIMID [Suspect]
     Indication: MULTIPLE MYELOMA
     Dosage: 25 MG, ORAL
     Route: 048
     Dates: start: 20090713, end: 20090927
  4. ASPIRIN [Concomitant]
  5. ZOLEDRONIC ACID [Concomitant]
  6. ZOLPIDEM [Concomitant]
  7. LORAZEPAM [Concomitant]

REACTIONS (14)
  - ARTHRALGIA [None]
  - ASTHENIA [None]
  - BONE LESION [None]
  - BONE PAIN [None]
  - DECREASED APPETITE [None]
  - DEPRESSION [None]
  - FATIGUE [None]
  - HYPOKALAEMIA [None]
  - LETHARGY [None]
  - MALAISE [None]
  - MALNUTRITION [None]
  - MUSCULAR WEAKNESS [None]
  - PAIN IN EXTREMITY [None]
  - WEIGHT DECREASED [None]
